FAERS Safety Report 23946495 (Version 1)
Quarter: 2024Q2

REPORT INFORMATION
  Report Type: Spontaneous
  Country: US (occurrence: US)
  Receive Date: 20240606
  Receipt Date: 20240606
  Transmission Date: 20240716
  Serious: Yes (Other)
  Sender: FDA-Public Use
  Company Number: US-SA-SAC20240604000073

PATIENT

DRUGS (1)
  1. MULTAQ [Suspect]
     Active Substance: DRONEDARONE
     Dosage: 400 MG, BID
     Route: 048

REACTIONS (1)
  - Pulmonary fibrosis [Not Recovered/Not Resolved]
